FAERS Safety Report 9750641 (Version 1)
Quarter: 2013Q4

REPORT INFORMATION
  Report Type: Spontaneous
  Country: ES (occurrence: ES)
  Receive Date: 20131212
  Receipt Date: 20131212
  Transmission Date: 20140711
  Serious: Yes (Other)
  Sender: FDA-Public Use
  Company Number: ES-ABBVIE-13P-144-1176755-00

PATIENT
  Age: 46 Year
  Sex: Female

DRUGS (6)
  1. NORVIR [Suspect]
     Indication: HIV INFECTION
     Dates: start: 2012
  2. INZITAN [Interacting]
     Indication: BACK PAIN
     Route: 030
     Dates: start: 20131030, end: 20131101
  3. PREZISTA [Interacting]
     Indication: HIV INFECTION
     Route: 048
     Dates: start: 2012
  4. ISENTRESS [Concomitant]
     Indication: HIV INFECTION
     Route: 048
  5. ONBREZ BREEZHALER [Concomitant]
     Indication: PRODUCT USED FOR UNKNOWN INDICATION
  6. TRUVADA [Concomitant]
     Indication: HIV INFECTION
     Route: 048

REACTIONS (3)
  - Hypercorticoidism [Recovered/Resolved]
  - Adrenal suppression [Recovered/Resolved]
  - Drug interaction [Unknown]
